FAERS Safety Report 7817551-X (Version None)
Quarter: 2011Q4

REPORT INFORMATION
  Report Type: 
  Country: None (occurrence: None)
  Receive Date: 20111017
  Receipt Date: 20111011
  Transmission Date: 20120403
  Serious: Yes (Life-Threatening, Hospitalization, Other)
  Sender: FDA-Public Use
  Company Number: US-JNJFOC-20111005057

PATIENT
  Age: 19 Year
  Sex: Female

DRUGS (2)
  1. ULTRAM [Suspect]
     Indication: PRODUCT USED FOR UNKNOWN INDICATION
     Route: 065
  2. METHADONE HCL [Suspect]
     Indication: PRODUCT USED FOR UNKNOWN INDICATION
     Route: 065

REACTIONS (10)
  - MENTAL STATUS CHANGES [None]
  - OXYGEN SATURATION DECREASED [None]
  - FALL [None]
  - CONVULSION [None]
  - HYPOTENSION [None]
  - LETHARGY [None]
  - BODY TEMPERATURE INCREASED [None]
  - SUBARACHNOID HAEMORRHAGE [None]
  - SINUS TACHYCARDIA [None]
  - BRADYCARDIA [None]
